FAERS Safety Report 8906677 (Version 1)
Quarter: 2012Q4

REPORT INFORMATION
  Report Type: 
  Country: US (occurrence: US)
  Receive Date: 20121114
  Receipt Date: 20121114
  Transmission Date: 20130627
  Serious: Yes (Other)
  Sender: FDA-Public Use
  Company Number: US-ACTELION-A-CH2012-74326

PATIENT
  Age: 64 Year
  Sex: Female

DRUGS (1)
  1. VELETRI [Suspect]
     Indication: PORTOPULMONARY HYPERTENSION
     Dosage: 36 ng/kg, UNK
     Route: 041

REACTIONS (11)
  - Splenomegaly [Recovering/Resolving]
  - Pancytopenia [Recovering/Resolving]
  - Epistaxis [Unknown]
  - Abdominal discomfort [Unknown]
  - Myelodysplastic syndrome [Unknown]
  - Bone marrow reticulin fibrosis [Unknown]
  - Biopsy bone marrow [Unknown]
  - Red blood cell abnormality [Unknown]
  - Haemoglobin decreased [Recovering/Resolving]
  - Platelet count decreased [Recovering/Resolving]
  - White blood cell count decreased [Recovering/Resolving]
